FAERS Safety Report 8198774-X (Version None)
Quarter: 2012Q1

REPORT INFORMATION
  Report Type: 
  Country: None (occurrence: None)
  Receive Date: 20120309
  Receipt Date: 20120206
  Transmission Date: 20120608
  Serious: No
  Sender: FDA-Public Use
  Company Number: US-AMGEN-USASP2012007792

PATIENT
  Sex: Female

DRUGS (10)
  1. EXCEDRIN [Concomitant]
     Dosage: UNK
  2. ALPRAZOLAM [Concomitant]
  3. PRAVACHOL [Concomitant]
  4. PROLIA [Suspect]
     Indication: OSTEOPOROSIS
     Dosage: 60 MG, Q6MO
     Route: 058
     Dates: start: 20110601
  5. VITAMIN D [Concomitant]
     Dosage: UNK
  6. ASTHMA [Concomitant]
  7. CARDENE [Concomitant]
  8. PROTONIX [Concomitant]
  9. IPRATROPIUM BROMIDE [Concomitant]
  10. CALCIUM [Concomitant]

REACTIONS (4)
  - TEMPOROMANDIBULAR JOINT SYNDROME [None]
  - PRURITUS [None]
  - ARTIFICIAL CROWN PROCEDURE [None]
  - RASH ERYTHEMATOUS [None]
